FAERS Safety Report 15826803 (Version 1)
Quarter: 2019Q1

REPORT INFORMATION
  Report Type: Spontaneous
  Country: CA (occurrence: CA)
  Receive Date: 20190115
  Receipt Date: 20190115
  Transmission Date: 20190417
  Serious: Yes (Other)
  Sender: FDA-Public Use
  Company Number: CA-PFIZER INC-2017438567

PATIENT
  Age: 65 Year
  Sex: Female

DRUGS (5)
  1. XELJANZ [Suspect]
     Active Substance: TOFACITINIB CITRATE
     Indication: RHEUMATOID ARTHRITIS
     Dosage: 5 MG, 2X/DAY
     Route: 048
     Dates: start: 20170926, end: 20171006
  2. XELJANZ [Suspect]
     Active Substance: TOFACITINIB CITRATE
     Dosage: 5 MG, 2X/DAY
     Route: 048
     Dates: end: 2018
  3. XELJANZ [Suspect]
     Active Substance: TOFACITINIB CITRATE
     Dosage: 5 MG, 2X/DAY
     Route: 048
     Dates: start: 20190101
  4. RHEUMATREX [Concomitant]
     Active Substance: METHOTREXATE SODIUM
     Indication: RHEUMATOID ARTHRITIS
     Dosage: UNK
     Route: 048
     Dates: start: 201101, end: 2018
  5. XELJANZ [Suspect]
     Active Substance: TOFACITINIB CITRATE
     Dosage: 5 MG, 2X/DAY
     Route: 048
     Dates: end: 201801

REACTIONS (20)
  - White blood cell count increased [Unknown]
  - Monocyte count increased [Unknown]
  - Blood cholesterol increased [Unknown]
  - Cough [Recovered/Resolved]
  - Herpes zoster [Unknown]
  - Adrenal disorder [Unknown]
  - Drug ineffective [Unknown]
  - Neutrophil count increased [Unknown]
  - Immune system disorder [Unknown]
  - Nasopharyngitis [Unknown]
  - Fatigue [Recovering/Resolving]
  - Blood triglycerides increased [Unknown]
  - Product use issue [Unknown]
  - Red cell distribution width increased [Unknown]
  - Cellulitis orbital [Unknown]
  - Malaise [Recovered/Resolved]
  - Sleep disorder [Unknown]
  - Gastric disorder [Unknown]
  - Limb injury [Unknown]
  - Influenza [Recovered/Resolved]

NARRATIVE: CASE EVENT DATE: 2017
